FAERS Safety Report 16203721 (Version 1)
Quarter: 2019Q2

REPORT INFORMATION
  Report Type: Report from Study
  Country: IE (occurrence: IE)
  Receive Date: 20190416
  Receipt Date: 20190416
  Transmission Date: 20190711
  Serious: Yes (Other)
  Sender: FDA-Public Use
  Company Number: PHHY2019IE064547

PATIENT
  Age: 39 Year
  Sex: Female

DRUGS (1)
  1. COSENTYX [Suspect]
     Active Substance: SECUKINUMAB
     Indication: PSORIATIC ARTHROPATHY
     Dosage: 150 MG, UNK
     Route: 058
     Dates: start: 20190307

REACTIONS (5)
  - Oropharyngeal pain [Not Recovered/Not Resolved]
  - Migraine [Recovered/Resolved]
  - Lower respiratory tract infection [Not Recovered/Not Resolved]
  - Migraine [Recovered/Resolved]
  - Nasopharyngitis [Not Recovered/Not Resolved]

NARRATIVE: CASE EVENT DATE: 20190310
